FAERS Safety Report 4470402-6 (Version None)
Quarter: 2004Q3

REPORT INFORMATION
  Report Type: 
  Country: None (occurrence: None)
  Receive Date: 20040910
  Receipt Date: 20040803
  Transmission Date: 20050211
  Serious: Yes (Disabling)
  Sender: FDA-Public Use
  Company Number: 2004-00272

PATIENT
  Age: 65 Year
  Sex: Male
  Weight: 78.5 kg

DRUGS (1)
  1. VELCADE [Suspect]
     Indication: MULTIPLE MYELOMA
     Dosage: 0.70 MG/M2, IV BOLUS
     Route: 042
     Dates: start: 20040501

REACTIONS (1)
  - APPLICATION SITE ERYTHEMA [None]
